FAERS Safety Report 5888712-4 (Version None)
Quarter: 2008Q3

REPORT INFORMATION
  Report Type: 
  Country: None (occurrence: None)
  Receive Date: 20080917
  Receipt Date: 20080908
  Transmission Date: 20090109
  Serious: Yes (Other)
  Sender: FDA-Public Use
  Company Number: 2008SP017099

PATIENT
  Age: 56 Year
  Sex: Male

DRUGS (1)
  1. TEMODAL [Suspect]
     Indication: OLIGODENDROGLIOMA
     Dosage: PO
     Route: 048

REACTIONS (3)
  - DRUG INTOLERANCE [None]
  - MENTAL DISORDER [None]
  - VISUAL IMPAIRMENT [None]
